FAERS Safety Report 10415246 (Version 1)
Quarter: 2014Q3

REPORT INFORMATION
  Report Type: Report from Study
  Country: US (occurrence: US)
  Receive Date: 20140828
  Receipt Date: 20140828
  Transmission Date: 20150326
  Serious: Yes (Other)
  Sender: FDA-Public Use
  Company Number: PHEH2014US017203

PATIENT
  Sex: Female

DRUGS (3)
  1. RITALIN [Suspect]
     Active Substance: METHYLPHENIDATE HYDROCHLORIDE
     Dosage: 20 MG, BID
     Dates: start: 1994
  2. METHYLPHENIDATE [Suspect]
     Active Substance: METHYLPHENIDATE
     Dosage: UNK UKN, UNK
  3. RITALIN [Suspect]
     Active Substance: METHYLPHENIDATE HYDROCHLORIDE
     Dosage: UNK UKN, UNK

REACTIONS (7)
  - Malaise [Unknown]
  - Asthenia [Unknown]
  - Hypotension [Unknown]
  - Bipolar disorder [Unknown]
  - Adenomyosis [Unknown]
  - Drug ineffective [Unknown]
  - Performance status decreased [Unknown]
